FAERS Safety Report 9665681 (Version 1)
Quarter: 2013Q4

REPORT INFORMATION
  Report Type: Other
  Country: FI (occurrence: FI)
  Receive Date: 20131104
  Receipt Date: 20131104
  Transmission Date: 20140711
  Serious: No
  Sender: FDA-Public Use
  Company Number: PHHY2013FI123654

PATIENT
  Age: 14 Year
  Sex: Female

DRUGS (3)
  1. LEPONEX [Suspect]
     Indication: SCHIZOPHRENIA
     Dosage: 25 MG, DAILY
     Dates: start: 201310
  2. LEPONEX [Suspect]
     Indication: OFF LABEL USE
  3. ZYPREXA [Concomitant]
     Dosage: UNK UKN, UNK

REACTIONS (1)
  - No adverse event [Unknown]
